FAERS Safety Report 4621360-2 (Version None)
Quarter: 2005Q1

REPORT INFORMATION
  Report Type: 
  Country: None (occurrence: None)
  Receive Date: 20050328
  Receipt Date: 20050316
  Transmission Date: 20050727
  Serious: Yes (Other)
  Sender: FDA-Public Use
  Company Number: 2005045572

PATIENT
  Sex: Male
  Weight: 79.3795 kg

DRUGS (2)
  1. SINUTAB SINUS MAXIMUM STRENGTH WITHOUT DROWSINESS (PARACETAMOL, PSEUDO [Suspect]
     Indication: NASAL SINUS DRAINAGE
     Dosage: 2-8 TABS QD AS NEEDED, ORAL
     Route: 048
     Dates: start: 19900101, end: 20050201
  2. LISINOPRIL [Concomitant]

REACTIONS (1)
  - SKIN CANCER [None]
